FAERS Safety Report 6810873-0 (Version None)
Quarter: 2010Q2

REPORT INFORMATION
  Report Type: 
  Country: None (occurrence: None)
  Receive Date: 20100630
  Receipt Date: 20100622
  Transmission Date: 20101027
  Serious: Yes (Hospitalization, Other)
  Sender: FDA-Public Use
  Company Number: VE-ABBOTT-10P-178-0651570-00

PATIENT
  Age: 69 Year
  Sex: Male

DRUGS (2)
  1. VALCOTE R [Suspect]
     Indication: DEPRESSION
     Dosage: 1500 MG DAILY
     Dates: start: 20091201, end: 20100601
  2. LAMICTAL [Interacting]
     Indication: CONVULSION
     Dosage: 75 MG DAILY
     Dates: start: 20100501, end: 20100601

REACTIONS (3)
  - CONVULSION [None]
  - DRUG INTERACTION [None]
  - STEVENS-JOHNSON SYNDROME [None]
